FAERS Safety Report 7914950-2 (Version None)
Quarter: 2011Q4

REPORT INFORMATION
  Report Type: 
  Country: None (occurrence: None)
  Receive Date: 20111115
  Receipt Date: 20100730
  Transmission Date: 20120403
  Serious: Yes (Hospitalization)
  Sender: FDA-Public Use
  Company Number: GB-ROCHE-1012635

PATIENT
  Sex: Male

DRUGS (4)
  1. ALBUTEROL SULFATE AUTOHALER [Concomitant]
  2. TIOTROPIUM [Concomitant]
  3. FLUTICASONE PROPIONATE/SALMETEROL [Concomitant]
  4. XOLAIR [Suspect]
     Indication: ASTHMA
     Dates: start: 20090304, end: 20090304

REACTIONS (1)
  - ASTHMA [None]
